FAERS Safety Report 20281316 (Version 13)
Quarter: 2023Q1

REPORT INFORMATION
  Report Type: Report from Study
  Country: GB (occurrence: GB)
  Receive Date: 20220103
  Receipt Date: 20230120
  Transmission Date: 20230417
  Serious: Yes (Hospitalization)
  Sender: FDA-Public Use
  Company Number: GB-SECURA BIO, INC.-2021-SECUR-GB003433

PATIENT
  Age: 74 Year
  Sex: Male
  Weight: 72.7 kg

DRUGS (6)
  1. DUVELISIB [Suspect]
     Active Substance: DUVELISIB
     Indication: Non-Hodgkin^s lymphoma
     Dosage: 25 MG, BID
     Route: 048
     Dates: start: 20210323, end: 20220107
  2. EDOXABAN [Concomitant]
     Active Substance: EDOXABAN
     Indication: Anticoagulant therapy
     Dosage: 60 MG, DAILY
     Route: 048
  3. MEBEVERINE [Concomitant]
     Active Substance: MEBEVERINE
     Indication: Muscle spasms
     Dosage: 135 MG, TID
     Route: 048
  4. ACETAMINOPHEN\CODEINE PHOSPHATE [Concomitant]
     Active Substance: ACETAMINOPHEN\CODEINE PHOSPHATE
     Indication: Analgesic therapy
     Dosage: 30/500 MG, TWO QID
  5. ACYCLOVIR [Concomitant]
     Active Substance: ACYCLOVIR
     Indication: Product used for unknown indication
     Dosage: 400 MG, BID
     Route: 048
     Dates: start: 20210323
  6. COTRIMOXAZOLE [Concomitant]
     Active Substance: SULFAMETHOXAZOLE\TRIMETHOPRIM
     Indication: Product used for unknown indication
     Dosage: 480 MG, DAILY
     Route: 048
     Dates: start: 20210323

REACTIONS (3)
  - Ascites [Recovered/Resolved]
  - Diarrhoea [Recovered/Resolved]
  - Sepsis [Recovered/Resolved]

NARRATIVE: CASE EVENT DATE: 20211216
